FAERS Safety Report 6591729-8 (Version None)
Quarter: 2010Q1

REPORT INFORMATION
  Report Type: 
  Country: None (occurrence: None)
  Receive Date: 20100221
  Receipt Date: 20090609
  Transmission Date: 20100710
  Serious: No
  Sender: FDA-Public Use
  Company Number: US-ALLERGAN-0907993US

PATIENT
  Sex: Male

DRUGS (4)
  1. BOTOX [Suspect]
     Indication: LACRIMATION INCREASED
     Dosage: UNK, SINGLE
     Route: 050
  2. BOTOX [Suspect]
     Indication: DRY EYE
  3. BOTOX [Suspect]
  4. BOTOX [Suspect]
     Indication: HERPES ZOSTER

REACTIONS (1)
  - EYELID PTOSIS [None]
